FAERS Safety Report 7422800-6 (Version None)
Quarter: 2011Q2

REPORT INFORMATION
  Report Type: 
  Country: None (occurrence: None)
  Receive Date: 20110419
  Receipt Date: 20110406
  Transmission Date: 20111010
  Serious: Yes (Hospitalization, Other)
  Sender: FDA-Public Use
  Company Number: US-US-EMD SERONO, INC.-7015874

PATIENT
  Sex: Female

DRUGS (4)
  1. COUMADIN [Concomitant]
     Indication: THROMBOSIS
  2. IBUPROFEN [Concomitant]
     Indication: PREMEDICATION
  3. ACETAMINOPHEN [Concomitant]
     Indication: PREMEDICATION
  4. REBIF [Suspect]
     Indication: MULTIPLE SCLEROSIS
     Route: 058
     Dates: start: 20100527, end: 20101201

REACTIONS (11)
  - CEREBROVASCULAR ACCIDENT [None]
  - NAUSEA [None]
  - MULTIPLE SCLEROSIS RELAPSE [None]
  - HEPATIC ENZYME INCREASED [None]
  - INJECTION SITE PAIN [None]
  - PNEUMONIA [None]
  - PAIN [None]
  - INJECTION SITE ERYTHEMA [None]
  - CONVULSION [None]
  - WHITE BLOOD CELL COUNT DECREASED [None]
  - PLATELET COUNT DECREASED [None]
